FAERS Safety Report 16256104 (Version 1)
Quarter: 2019Q2

REPORT INFORMATION
  Report Type: Spontaneous
  Country: GB (occurrence: GB)
  Receive Date: 20190430
  Receipt Date: 20190430
  Transmission Date: 20190711
  Serious: Yes (Other)
  Sender: FDA-Public Use
  Company Number: GB-AUROBINDO-AUR-APL-2019-023336

PATIENT

DRUGS (2)
  1. LANSOPRAZOLE. [Concomitant]
     Active Substance: LANSOPRAZOLE
     Indication: PRODUCT USED FOR UNKNOWN INDICATION
     Dosage: UNK
     Route: 065
  2. SERTRALINE [Suspect]
     Active Substance: SERTRALINE HYDROCHLORIDE
     Indication: DEPRESSION
     Dosage: 25 MILLIGRAM, EVERY OTHER DAY
     Route: 048
     Dates: start: 20170223, end: 20190324

REACTIONS (4)
  - Peripheral swelling [Not Recovered/Not Resolved]
  - Onycholysis [Not Recovered/Not Resolved]
  - Pruritus [Not Recovered/Not Resolved]
  - Onychalgia [Not Recovered/Not Resolved]

NARRATIVE: CASE EVENT DATE: 20190305
